FAERS Safety Report 7554508-0 (Version None)
Quarter: 2011Q2

REPORT INFORMATION
  Report Type: 
  Country: None (occurrence: None)
  Receive Date: 20110617
  Receipt Date: 20110609
  Transmission Date: 20111010
  Serious: Yes (Hospitalization)
  Sender: FDA-Public Use
  Company Number: B0725195A

PATIENT
  Sex: Male

DRUGS (5)
  1. KARDEGIC [Concomitant]
     Route: 065
  2. NEXIUM [Concomitant]
     Dosage: 40MG PER DAY
     Route: 065
  3. ARIXTRA [Suspect]
     Indication: PULMONARY EMBOLISM
     Dosage: 7.5MG PER DAY
     Route: 058
     Dates: start: 20101201, end: 20110408
  4. VASTAREL [Concomitant]
     Dosage: 70MG PER DAY
     Route: 065
  5. OXAZEPAM [Concomitant]
     Dosage: 70MG PER DAY
     Route: 065

REACTIONS (2)
  - INCORRECT DRUG ADMINISTRATION DURATION [None]
  - ABDOMINAL WALL HAEMATOMA [None]
